FAERS Safety Report 13109210 (Version 1)
Quarter: 2017Q1

REPORT INFORMATION
  Report Type: Spontaneous
  Country: US (occurrence: US)
  Receive Date: 20170112
  Receipt Date: 20170112
  Transmission Date: 20170428
  Serious: Yes (Other)
  Sender: FDA-Public Use
  Company Number: US-PFIZER INC-2017011876

PATIENT
  Age: 49 Year
  Sex: Female

DRUGS (2)
  1. MECLOFENAMATE SODIUM. [Suspect]
     Active Substance: MECLOFENAMATE SODIUM
     Dosage: 100 MG, DAILY
  2. DICLOFENAC SODIUM. [Suspect]
     Active Substance: DICLOFENAC SODIUM
     Dosage: 75 MG, DAILY

REACTIONS (1)
  - Large intestinal stenosis [Unknown]
